FAERS Safety Report 8814255 (Version 1)
Quarter: 2012Q4

REPORT INFORMATION
  Report Type: 
  Country: US (occurrence: None)
  Receive Date: 20120926
  Receipt Date: 20120926
  Transmission Date: 20130627
  Serious: Yes (Hospitalization)
  Sender: FDA-Public Use
  Company Number: None

PATIENT
  Sex: Female
  Weight: 87.58 kg

DRUGS (2)
  1. 5-FLUOROURACIL [Suspect]
  2. CISPLATIN [Suspect]

REACTIONS (16)
  - Nausea [None]
  - Vomiting [None]
  - Dehydration [None]
  - Hypotension [None]
  - Hyponatraemia [None]
  - Dysphagia [None]
  - Hypovolaemia [None]
  - Pancytopenia [None]
  - Oesophagitis ulcerative [None]
  - Febrile neutropenia [None]
  - Swollen tongue [None]
  - Mucosal inflammation [None]
  - Stomatitis [None]
  - Alopecia [None]
  - Skin discolouration [None]
  - Dihydropyrimidine dehydrogenase deficiency [None]
